FAERS Safety Report 4899916-1 (Version None)
Quarter: 2006Q1

REPORT INFORMATION
  Report Type: 
  Country: None (occurrence: None)
  Receive Date: 20060118
  Receipt Date: 20050603
  Transmission Date: 20060701
  Serious: No
  Sender: FDA-Public Use
  Company Number: 2005001050

PATIENT
  Age: 72 Year
  Sex: Male

DRUGS (2)
  1. TARCEVA [Suspect]
     Indication: NON-SMALL CELL LUNG CANCER
     Dosage: 150 MG (QD), ORAL
     Route: 048
     Dates: start: 20041001, end: 20041101
  2. TARCEVA [Suspect]
     Dosage: 100 MG (QD), ORAL
     Route: 048
     Dates: start: 20041101

REACTIONS (3)
  - ALOPECIA [None]
  - DIARRHOEA [None]
  - RASH [None]
